FAERS Safety Report 4472927-6 (Version None)
Quarter: 2004Q4

REPORT INFORMATION
  Report Type: 
  Country: None (occurrence: None)
  Receive Date: 20041013
  Receipt Date: 20030605
  Transmission Date: 20050328
  Serious: Yes (Hospitalization, Disabling, Other)
  Sender: FDA-Public Use
  Company Number: US-MERCK-0306USA00713

PATIENT
  Sex: Male
  Weight: 72 kg

DRUGS (4)
  1. CELEXA [Concomitant]
     Route: 065
  2. KLONOPIN [Concomitant]
     Route: 065
  3. PRILOSEC [Concomitant]
     Route: 065
  4. VIOXX [Suspect]
     Route: 048

REACTIONS (16)
  - ADVERSE EVENT [None]
  - ANGINA PECTORIS [None]
  - BLOOD PRESSURE INCREASED [None]
  - CERVICOBRACHIAL SYNDROME [None]
  - CONDITION AGGRAVATED [None]
  - CONVULSION [None]
  - DEPRESSION [None]
  - HEADACHE [None]
  - INTERVERTEBRAL DISC PROTRUSION [None]
  - LUMBAR RADICULOPATHY [None]
  - MEMORY IMPAIRMENT [None]
  - NAUSEA [None]
  - POST PROCEDURAL COMPLICATION [None]
  - REFUSAL OF EXAMINATION [None]
  - ROTATOR CUFF SYNDROME [None]
  - VOMITING [None]
